FAERS Safety Report 14804494 (Version 1)
Quarter: 2018Q2

REPORT INFORMATION
  Report Type: Spontaneous
  Country: US (occurrence: US)
  Receive Date: 20180425
  Receipt Date: 20180425
  Transmission Date: 20180711
  Serious: No
  Sender: FDA-Public Use
  Company Number: US-TEVA-2018-US-867926

PATIENT
  Sex: Female

DRUGS (1)
  1. NECON 1/50 [Suspect]
     Active Substance: MESTRANOL\NORETHINDRONE
     Route: 065

REACTIONS (3)
  - Wrong technique in product usage process [Unknown]
  - Product use issue [Unknown]
  - Therapeutic response unexpected [Unknown]
